FAERS Safety Report 21907824 (Version 1)
Quarter: 2023Q1

REPORT INFORMATION
  Report Type: Spontaneous
  Country: US (occurrence: US)
  Receive Date: 20230125
  Receipt Date: 20230125
  Transmission Date: 20230418
  Serious: No
  Sender: FDA-Public Use
  Company Number: US-ViiV Healthcare Limited-90850

PATIENT
  Sex: Female

DRUGS (1)
  1. SELZENTRY [Suspect]
     Active Substance: MARAVIROC
     Indication: Product used for unknown indication
     Dosage: UNK
     Dates: start: 2022

REACTIONS (1)
  - Abdominal pain upper [Recovered/Resolved]
